FAERS Safety Report 17387609 (Version 1)
Quarter: 2020Q1

REPORT INFORMATION
  Report Type: Spontaneous
  Country: US (occurrence: US)
  Receive Date: 20200122
  Receipt Date: 20200122
  Transmission Date: 20200409
  Serious: Yes (Life-Threatening)
  Sender: FDA-Public Use
  Company Number: None

PATIENT
  Age: 79 Year
  Sex: Male
  Weight: 74.39 kg

DRUGS (13)
  1. GINGER. [Concomitant]
     Active Substance: GINGER
  2. TURMERIC [Concomitant]
     Active Substance: HERBALS\TURMERIC
  3. PYRISDOSTIGMINE [Concomitant]
  4. PANTOTEMIC ACID [Concomitant]
  5. PROPOLIS [Concomitant]
     Active Substance: PROPOLIS WAX
  6. CHOLINE-INOSITOL [Concomitant]
  7. PROBIOTICS [Concomitant]
     Active Substance: PROBIOTICS NOS
  8. GAMUNEX-C [Suspect]
     Active Substance: HUMAN IMMUNOGLOBULIN G
     Indication: MYASTHENIA GRAVIS CRISIS
     Route: 042
     Dates: start: 2012, end: 201912
  9. PREDNISONE. [Concomitant]
     Active Substance: PREDNISONE
  10. VITAMIN D3 [Concomitant]
     Active Substance: CHOLECALCIFEROL
  11. MANGANESE [Concomitant]
     Active Substance: MANGANESE CHLORIDE
  12. MANUKA HONEY-BEE VENOM [Concomitant]
  13. BEE VENOM THERAPY [Concomitant]

REACTIONS (16)
  - Sneezing [None]
  - Secretion discharge [None]
  - Weight increased [None]
  - Asthenia [None]
  - Nasal congestion [None]
  - Headache [None]
  - Meningitis [None]
  - Pain [None]
  - Urine output decreased [None]
  - Dyspnoea [None]
  - Neck pain [None]
  - Encephalitis [None]
  - Cough [None]
  - Dizziness [None]
  - Coordination abnormal [None]
  - Cerebral disorder [None]

NARRATIVE: CASE EVENT DATE: 20190905
